FAERS Safety Report 25239167 (Version 1)
Quarter: 2025Q2

REPORT INFORMATION
  Report Type: Other
  Country: US (occurrence: US)
  Receive Date: 20250425
  Receipt Date: 20250425
  Transmission Date: 20250716
  Serious: Yes (Hospitalization, Other)
  Sender: ESJAY PHARMA
  Company Number: US-ESJAY PHARMA-000550

PATIENT
  Sex: Female

DRUGS (1)
  1. IMATINIB [Suspect]
     Active Substance: IMATINIB
     Indication: Chronic myeloid leukaemia

REACTIONS (4)
  - Atypical femur fracture [Recovering/Resolving]
  - Spondylolysis [Recovering/Resolving]
  - Osteonecrosis [Recovered/Resolved]
  - Foot fracture [Recovering/Resolving]
